FAERS Safety Report 7211133-9 (Version None)
Quarter: 2011Q1

REPORT INFORMATION
  Report Type: 
  Country: None (occurrence: None)
  Receive Date: 20110105
  Receipt Date: 20101222
  Transmission Date: 20110831
  Serious: Yes (Death, Other)
  Sender: FDA-Public Use
  Company Number: PHHY2010US87343

PATIENT
  Age: 74 Year
  Sex: Male

DRUGS (2)
  1. ASPIRIN [Suspect]
     Dosage: UNK
  2. WARFARIN [Suspect]

REACTIONS (10)
  - INFECTION [None]
  - ANAEMIA [None]
  - BEDRIDDEN [None]
  - ACQUIRED VON WILLEBRAND'S DISEASE [None]
  - GASTROINTESTINAL HAEMORRHAGE [None]
  - DEATH [None]
  - MELAENA [None]
  - PSEUDOMONAL BACTERAEMIA [None]
  - ASTHENIA [None]
  - THROMBOCYTOPENIA [None]
